FAERS Safety Report 5793825-1 (Version None)
Quarter: 2008Q2

REPORT INFORMATION
  Report Type: 
  Country: None (occurrence: None)
  Receive Date: 20080627
  Receipt Date: 20080619
  Transmission Date: 20081010
  Serious: Yes (Hospitalization, Other)
  Sender: FDA-Public Use
  Company Number: CH-PFIZER INC-2008051308

PATIENT
  Age: 55 Year
  Sex: Male

DRUGS (1)
  1. METHYLPREDNISOLONE SODIUM SUCCINATE [Suspect]
     Indication: OPTIC NEUROPATHY
     Dosage: TEXT:2 G/DAY
     Route: 042

REACTIONS (1)
  - MUCORMYCOSIS [None]
